FAERS Safety Report 6326052-X (Version None)
Quarter: 2009Q3

REPORT INFORMATION
  Report Type: 
  Country: None (occurrence: None)
  Receive Date: 20090820
  Receipt Date: 20090810
  Transmission Date: 20100115
  Serious: Yes (Other)
  Sender: FDA-Public Use
  Company Number: STI-2009-02132

PATIENT
  Age: 22 Year
  Sex: Female

DRUGS (1)
  1. DUAC [Suspect]
     Indication: ACNE
     Dosage: TOPICAL
     Route: 061
     Dates: start: 20090720

REACTIONS (2)
  - PHOTODERMATOSIS [None]
  - SUNBURN [None]
